FAERS Safety Report 16568313 (Version 2)
Quarter: 2019Q3

REPORT INFORMATION
  Report Type: Report from Study
  Country: JP (occurrence: JP)
  Receive Date: 20190712
  Receipt Date: 20190722
  Transmission Date: 20191004
  Serious: Yes (Death, Hospitalization, Other)
  Sender: FDA-Public Use
  Company Number: PHHY2011JP70000

PATIENT
  Age: 63 Year
  Sex: Female
  Weight: 35 kg

DRUGS (8)
  1. AFINITOR [Suspect]
     Active Substance: EVEROLIMUS
     Indication: METASTATIC RENAL CELL CARCINOMA
     Dosage: 5 MG, QD
     Route: 048
     Dates: start: 20101023, end: 20101030
  2. MAGLAX [Concomitant]
     Active Substance: MAGNESIUM OXIDE
     Indication: METASTATIC RENAL CELL CARCINOMA
     Dosage: 1.8 G, QD
     Route: 048
     Dates: start: 20101023, end: 20101223
  3. MOBIC [Concomitant]
     Active Substance: MELOXICAM
     Indication: METASTATIC RENAL CELL CARCINOMA
     Dosage: 10 MG, QD
     Route: 048
     Dates: start: 20101023, end: 20101223
  4. THYRADIN S [Concomitant]
     Active Substance: LEVOTHYROXINE SODIUM
     Indication: PRODUCT USED FOR UNKNOWN INDICATION
     Dosage: 50 UG, QD
     Route: 048
     Dates: start: 20101023, end: 20101223
  5. GASLON [Concomitant]
     Active Substance: IRSOGLADINE MALEATE
     Indication: METASTATIC RENAL CELL CARCINOMA
     Dosage: 4 MG, QD
     Route: 048
     Dates: start: 20101023, end: 20101223
  6. RIZE [Concomitant]
     Active Substance: CLOTIAZEPAM
     Indication: METASTATIC RENAL CELL CARCINOMA
     Dosage: 5 MG, QD
     Route: 048
     Dates: start: 20101023, end: 20101223
  7. SUNITINIB MALATE. [Concomitant]
     Active Substance: SUNITINIB MALATE
     Indication: METASTATIC RENAL CELL CARCINOMA
     Dosage: 25 MG, QD
     Route: 048
     Dates: start: 20100226, end: 20101023
  8. AFINITOR [Suspect]
     Active Substance: EVEROLIMUS
     Dosage: 5 MG, QD
     Route: 048
     Dates: start: 20101108, end: 20101215

REACTIONS (10)
  - Metastatic renal cell carcinoma [Fatal]
  - Malignant neoplasm progression [Fatal]
  - Decreased appetite [Unknown]
  - Nausea [Unknown]
  - Platelet count decreased [Recovered/Resolved]
  - Malaise [Unknown]
  - Vomiting [Unknown]
  - Hepatic function abnormal [Unknown]
  - Dyspnoea [Unknown]
  - Hypercholesterolaemia [Unknown]

NARRATIVE: CASE EVENT DATE: 20101030
